FAERS Safety Report 8521970-6 (Version None)
Quarter: 2012Q3

REPORT INFORMATION
  Report Type: 
  Country: None (occurrence: None)
  Receive Date: 20120719
  Receipt Date: 20120710
  Transmission Date: 20120928
  Serious: Yes (Other)
  Sender: FDA-Public Use
  Company Number: US-ASTRAZENECA-2012SE47261

PATIENT
  Age: 73 Year
  Sex: Female
  Weight: 70.3 kg

DRUGS (2)
  1. TOPROL-XL [Suspect]
     Indication: HEART RATE INCREASED
     Route: 048
     Dates: start: 20110331
  2. ALKERAN [Concomitant]
     Dosage: PILLS EVERY 6 WEEKS, BUT IT WAS UPPED TO 5 PILLS

REACTIONS (14)
  - WEIGHT INCREASED [None]
  - MUSCLE SPASMS [None]
  - FEELING ABNORMAL [None]
  - PRURITUS [None]
  - DIZZINESS [None]
  - OFF LABEL USE [None]
  - DYSPEPSIA [None]
  - HYPOAESTHESIA [None]
  - INTENTIONAL DRUG MISUSE [None]
  - MALIGNANT MELANOMA [None]
  - FATIGUE [None]
  - TACHYCARDIA [None]
  - HYPOTENSION [None]
  - ASTHENIA [None]
